FAERS Safety Report 10192280 (Version 2)
Quarter: 2014Q2

REPORT INFORMATION
  Report Type: Report from Study
  Country: US (occurrence: US)
  Receive Date: 20140523
  Receipt Date: 20140616
  Transmission Date: 20141212
  Serious: Yes (Hospitalization)
  Sender: FDA-Public Use
  Company Number: PHEH2014US010180

PATIENT
  Age: 37 Year
  Sex: Male

DRUGS (1)
  1. TOBI [Suspect]
     Indication: CYSTIC FIBROSIS
     Dosage: 300 MG/5ML TWICE DAILY ON AND OFF EVERY 28 DAYS
     Route: 055

REACTIONS (2)
  - Condition aggravated [Unknown]
  - Cystic fibrosis [Unknown]
